FAERS Safety Report 5542866-8 (Version None)
Quarter: 2007Q4

REPORT INFORMATION
  Report Type: 
  Country: None (occurrence: None)
  Receive Date: 20071210
  Receipt Date: 20071205
  Transmission Date: 20080405
  Serious: Yes (Death, Other)
  Sender: FDA-Public Use
  Company Number: BE-ABBOTT-07P-013-0365663-00

PATIENT
  Sex: Female

DRUGS (4)
  1. HUMIRA [Suspect]
     Indication: RHEUMATOID ARTHRITIS
     Route: 058
     Dates: start: 20060101
  2. PREDNISOLONE [Concomitant]
     Indication: RHEUMATOID ARTHRITIS
  3. IBANDRONIC ACID [Concomitant]
     Indication: DRUG USE FOR UNKNOWN INDICATION
  4. LORAZEPAM [Concomitant]
     Indication: DRUG USE FOR UNKNOWN INDICATION

REACTIONS (5)
  - CERVIX CARCINOMA STAGE IV [None]
  - EMBOLISM [None]
  - METASTASES TO LIVER [None]
  - NEOPLASM [None]
  - VAGINAL CANCER METASTATIC [None]
